FAERS Safety Report 4475238-8 (Version None)
Quarter: 2004Q4

REPORT INFORMATION
  Report Type: 
  Country: None (occurrence: None)
  Receive Date: 20041013
  Receipt Date: 20041013
  Transmission Date: 20050328
  Serious: Yes (Hospitalization)
  Sender: FDA-Public Use
  Company Number: None

PATIENT
  Age: 57 Year
  Sex: Male
  Weight: 97.977 kg

DRUGS (6)
  1. XELODA [Suspect]
     Indication: GLIOBLASTOMA MULTIFORME
     Dosage: 2850 MG BID ORAL
     Route: 048
     Dates: start: 20040412, end: 20041002
  2. PROTONIX [Concomitant]
  3. DECADRON [Concomitant]
  4. KEPPRA [Concomitant]
  5. IRON [Concomitant]
  6. MULTIVITAMIN [Concomitant]

REACTIONS (2)
  - HEMIPARESIS [None]
  - INFARCTION [None]
